FAERS Safety Report 5442910-2 (Version None)
Quarter: 2007Q3

REPORT INFORMATION
  Report Type: 
  Country: None (occurrence: None)
  Receive Date: 20070830
  Receipt Date: 20070817
  Transmission Date: 20080115
  Serious: Yes (Hospitalization)
  Sender: FDA-Public Use
  Company Number: 230044M07FRA

PATIENT
  Age: 38 Year
  Sex: Female

DRUGS (1)
  1. REBIF [Suspect]
     Dosage: SUBCUTANEOUS
     Route: 058
     Dates: start: 20060701, end: 20070401

REACTIONS (6)
  - CELLULITIS [None]
  - CULTURE URINE POSITIVE [None]
  - ESCHERICHIA INFECTION [None]
  - INJECTION SITE INFLAMMATION [None]
  - INJECTION SITE NODULE [None]
  - WRONG TECHNIQUE IN DRUG USAGE PROCESS [None]
